FAERS Safety Report 4497991-X (Version None)
Quarter: 2004Q4

REPORT INFORMATION
  Report Type: 
  Country: None (occurrence: None)
  Receive Date: 20041109
  Receipt Date: 20041109
  Transmission Date: 20050328
  Serious: Yes (Hospitalization)
  Sender: FDA-Public Use
  Company Number: None

PATIENT
  Age: 43 Year
  Sex: Male
  Weight: 68.4932 kg

DRUGS (6)
  1. DILANTIN [Suspect]
     Indication: CONVULSION
     Dosage: 200MG TID ORAL
     Route: 048
     Dates: start: 20000404, end: 20040921
  2. IBUPROFEN [Concomitant]
  3. RANITIDINE HCL [Concomitant]
  4. HYDROCHLOROTHIAZIDE [Concomitant]
  5. HYDROCODONE 5/ACETAMINOPHEN [Concomitant]
  6. DILANTIN [Concomitant]

REACTIONS (7)
  - ALCOHOL WITHDRAWAL SYNDROME [None]
  - AMPUTATION [None]
  - DRUG LEVEL ABOVE THERAPEUTIC [None]
  - DRUG TOXICITY [None]
  - MALAISE [None]
  - NEUROPATHIC PAIN [None]
  - TREMOR [None]
